FAERS Safety Report 9108506 (Version 2)
Quarter: 2013Q2

REPORT INFORMATION
  Report Type: Spontaneous
  Country: US (occurrence: US)
  Receive Date: 20130222
  Receipt Date: 20130425
  Transmission Date: 20140414
  Serious: Yes (Hospitalization, Other)
  Sender: FDA-Public Use
  Company Number: US-BAYER-2013-021555

PATIENT
  Age: 28 Year
  Sex: Female
  Weight: 88.44 kg

DRUGS (3)
  1. GIANVI [Suspect]
  2. OXYCODONE [Concomitant]
  3. HYDROCODONE [Concomitant]

REACTIONS (4)
  - Pulmonary embolism [None]
  - Pulmonary embolism [None]
  - Deep vein thrombosis [None]
  - Cholecystitis chronic [None]
